FAERS Safety Report 6636390-9 (Version None)
Quarter: 2010Q1

REPORT INFORMATION
  Report Type: 
  Country: None (occurrence: None)
  Receive Date: 20100226
  Receipt Date: 20091029
  Transmission Date: 20100710
  Serious: Yes (Disabling)
  Sender: FDA-Public Use
  Company Number: WAES 0910USA04263

PATIENT
  Sex: Female

DRUGS (1)
  1. PRINIVIL [Suspect]

REACTIONS (1)
  - DIZZINESS [None]
